FAERS Safety Report 8095588-6 (Version None)
Quarter: 2012Q1

REPORT INFORMATION
  Report Type: 
  Country: None (occurrence: None)
  Receive Date: 20120129
  Receipt Date: 20111227
  Transmission Date: 20120608
  Serious: No
  Sender: FDA-Public Use
  Company Number: US-ABBOTT-11P-163-0887168-00

PATIENT
  Age: 63 Year
  Sex: Female

DRUGS (7)
  1. HUMIRA [Suspect]
     Indication: RHEUMATOID ARTHRITIS
     Dates: start: 20111107
  2. ARAVA [Concomitant]
     Indication: ARTHRITIS
  3. IBUPROFEN [Concomitant]
     Indication: ARTHRITIS
     Dosage: AT NIGHT
  4. CORTISONE ACETATE [Concomitant]
  5. CITALOPRAM [Concomitant]
     Indication: DEPRESSION
  6. CORTISONE ACETATE [Concomitant]
     Indication: PRODUCT USED FOR UNKNOWN INDICATION
  7. CORTISONE ACETATE [Concomitant]

REACTIONS (4)
  - ARTHRITIS [None]
  - ARTHRALGIA [None]
  - DRUG INEFFECTIVE [None]
  - ABASIA [None]
